FAERS Safety Report 24546865 (Version 1)
Quarter: 2024Q4

REPORT INFORMATION
  Report Type: Report from Study
  Country: CA (occurrence: CA)
  Receive Date: 20241024
  Receipt Date: 20241024
  Transmission Date: 20250115
  Serious: Yes (Hospitalization)
  Sender: ABBVIE
  Company Number: CA-ABBVIE-5975312

PATIENT
  Age: 72 Year
  Sex: Male

DRUGS (1)
  1. RINVOQ [Suspect]
     Active Substance: UPADACITINIB
     Indication: Rheumatoid arthritis
     Route: 048
     Dates: start: 20240503

REACTIONS (3)
  - Pyrexia [Unknown]
  - Catheter site pain [Unknown]
  - Vascular device occlusion [Unknown]

NARRATIVE: CASE EVENT DATE: 20240101
